FAERS Safety Report 23312592 (Version 2)
Quarter: 2023Q4

REPORT INFORMATION
  Report Type: Spontaneous
  Country: CA (occurrence: CA)
  Receive Date: 20231219
  Receipt Date: 20231226
  Transmission Date: 20240109
  Serious: Yes (Hospitalization, Other)
  Sender: FDA-Public Use
  Company Number: CA-Accord-393330

PATIENT
  Age: 7 Decade
  Sex: Female

DRUGS (11)
  1. TEMOZOLOMIDE [Suspect]
     Active Substance: TEMOZOLOMIDE
     Indication: Glioblastoma multiforme
  2. DEXAMETHASONE [Suspect]
     Active Substance: DEXAMETHASONE
     Dosage: TAPER
  3. ROSUVASTATIN [Concomitant]
     Active Substance: ROSUVASTATIN
  4. CALCIUM CARBONATE [Concomitant]
     Active Substance: CALCIUM CARBONATE
  5. LEVOTHYROXINE [Concomitant]
     Active Substance: LEVOTHYROXINE
  6. PANTOPRAZOLE [Concomitant]
     Active Substance: PANTOPRAZOLE
  7. PREGABALIN [Concomitant]
     Active Substance: PREGABALIN
  8. AZITHROMYCIN [Concomitant]
     Active Substance: AZITHROMYCIN
     Indication: Evidence based treatment
  9. ONDANSETRON [Concomitant]
     Active Substance: ONDANSETRON
  10. AZITHROMYCIN [Concomitant]
     Active Substance: AZITHROMYCIN
     Indication: Pneumonia
  11. DEXAMETHASONE [Suspect]
     Active Substance: DEXAMETHASONE
     Dosage: 1.5 MG EVERY OTHER DAY

REACTIONS (7)
  - Cryptococcosis [Recovered/Resolved]
  - Pleural effusion [Recovered/Resolved]
  - Pneumonia cryptococcal [Recovered/Resolved]
  - Lymphopenia [Unknown]
  - Disseminated cryptococcosis [Recovered/Resolved]
  - Confusional state [Recovered/Resolved]
  - Atelectasis [Recovered/Resolved]
